FAERS Safety Report 16140112 (Version 2)
Quarter: 2019Q2

REPORT INFORMATION
  Report Type: Spontaneous
  Country: ES (occurrence: ES)
  Receive Date: 20190331
  Receipt Date: 20190406
  Transmission Date: 20190711
  Serious: Yes (Other)
  Sender: FDA-Public Use
  Company Number: ES-UCBSA-2019013130

PATIENT
  Age: 78 Year
  Sex: Female

DRUGS (3)
  1. MIRTAZAPINA 15 MG COMPRIMIDOS [Concomitant]
     Indication: DEPRESSION
     Dosage: 1/2 COMP AL ACOSTARSE
     Route: 048
     Dates: start: 20180412, end: 20180426
  2. CERTOLIZUMAB PEGOL [Suspect]
     Active Substance: CERTOLIZUMAB PEGOL
     Indication: SERONEGATIVE ARTHRITIS
     Dosage: 1 JERINGA 200MG CADA 2 SEMANAS
     Route: 051
     Dates: start: 20141001, end: 20190124
  3. ENALAPRIL (2142A) [Concomitant]
     Active Substance: ENALAPRIL
     Indication: HYPERTENSION
     Dosage: 10 MG EN EL DESAYUNO
     Route: 048
     Dates: start: 20180403, end: 20180426

REACTIONS (4)
  - Face oedema [Recovered/Resolved]
  - Angioedema [Recovered/Resolved]
  - Eosinophilia [Recovered/Resolved]
  - Tongue oedema [Recovered/Resolved]

NARRATIVE: CASE EVENT DATE: 20180426
